FAERS Safety Report 11645588 (Version 1)
Quarter: 2015Q4

REPORT INFORMATION
  Report Type: Spontaneous
  Country: US (occurrence: US)
  Receive Date: 20151020
  Receipt Date: 20151020
  Transmission Date: 20160304
  Serious: No
  Sender: FDA-Public Use
  Company Number: US-PHARMA-MED-USA-POI0580201500067

PATIENT
  Age: 46 Year
  Sex: Female

DRUGS (1)
  1. POTASSIUM CHLORIDE ORAL SOLUTION .10 [Suspect]
     Active Substance: POTASSIUM CHLORIDE
     Indication: HYPOKALAEMIA
     Dosage: 20 MEQ DILUTED WITH 4 OUNCES OF WATER
     Dates: start: 20150711, end: 20150711

REACTIONS (1)
  - Urticaria [Unknown]

NARRATIVE: CASE EVENT DATE: 20150711
